FAERS Safety Report 15431682 (Version 1)
Quarter: 2018Q3

REPORT INFORMATION
  Report Type: Spontaneous
  Country: GB (occurrence: FR)
  Receive Date: 20180926
  Receipt Date: 20180926
  Transmission Date: 20181010
  Serious: Yes (Hospitalization, Other)
  Sender: FDA-Public Use
  Company Number: FR-FRESENIUS KABI-FK201810008

PATIENT
  Age: 60 Year
  Sex: Male
  Weight: 100 kg

DRUGS (6)
  1. METHYL AMINOLEVULINATE [Concomitant]
     Active Substance: METHYL AMINOLEVULINATE
     Indication: PRODUCT USED FOR UNKNOWN INDICATION
     Route: 065
     Dates: start: 20120503, end: 20120503
  2. CEFAZOLIN [Suspect]
     Active Substance: CEFAZOLIN
     Indication: INFECTION PROPHYLAXIS
     Dosage: 2000 MG,1X (DURING 10 MINUTES)
     Route: 042
     Dates: start: 20120503, end: 20120503
  3. PROFENID [Suspect]
     Active Substance: KETOPROFEN
     Indication: PAIN
     Route: 042
     Dates: start: 20120503, end: 20120503
  4. MAGNESIUM GLYCOCOLLE LAFARGE [Concomitant]
     Indication: PRODUCT USED FOR UNKNOWN INDICATION
     Route: 043
     Dates: start: 20120503, end: 20120503
  5. PROPOFOL (MANUFACTURER UNKNOWN) [Suspect]
     Active Substance: PROPOFOL
     Indication: ANAESTHESIA
     Route: 042
     Dates: start: 20120503, end: 20120503
  6. SUFENTA [Suspect]
     Active Substance: SUFENTANIL CITRATE
     Indication: ANALGESIC THERAPY
     Dosage: 20 UG,1X (DURING 1 MINUTE)
     Route: 065
     Dates: start: 20120503, end: 20120503

REACTIONS (1)
  - Anaphylactic shock [Recovered/Resolved]

NARRATIVE: CASE EVENT DATE: 20120503
